FAERS Safety Report 7775310-0 (Version None)
Quarter: 2011Q3

REPORT INFORMATION
  Report Type: 
  Country: None (occurrence: None)
  Receive Date: 20110921
  Receipt Date: 20110906
  Transmission Date: 20111222
  Serious: Yes (Hospitalization)
  Sender: FDA-Public Use
  Company Number: DSA_44795_2011

PATIENT
  Age: 36 Year
  Sex: Female

DRUGS (4)
  1. CORTICOSTEROIDS [Concomitant]
  2. ENALAPRIL MALEATE AND HYDROCHLOROTHIAZIDE [Suspect]
     Indication: HYPERTENSION
     Dosage: (32.5 MG QD ORAL)
     Route: 048
     Dates: start: 20091029, end: 20091029
  3. LYSODREN [Concomitant]
  4. THERAPY UNSPECIFIED [Concomitant]

REACTIONS (1)
  - HYPOTENSION [None]
